FAERS Safety Report 8504643-5 (Version None)
Quarter: 2012Q3

REPORT INFORMATION
  Report Type: 
  Country: None (occurrence: None)
  Receive Date: 20120711
  Receipt Date: 20120629
  Transmission Date: 20120928
  Serious: Yes (Other)
  Sender: FDA-Public Use
  Company Number: US-ROCHE-1060762

PATIENT
  Sex: Male
  Weight: 56.75 kg

DRUGS (1)
  1. ACCUTANE [Suspect]
     Indication: ACNE
     Dates: start: 19820901, end: 19830501

REACTIONS (6)
  - COLITIS ULCERATIVE [None]
  - IRRITABLE BOWEL SYNDROME [None]
  - DEPRESSION [None]
  - STRESS [None]
  - SUICIDAL IDEATION [None]
  - INTESTINAL OBSTRUCTION [None]
